FAERS Safety Report 16237431 (Version 1)
Quarter: 2019Q2

REPORT INFORMATION
  Report Type: Spontaneous
  Country: DE (occurrence: DE)
  Receive Date: 20190425
  Receipt Date: 20190425
  Transmission Date: 20190711
  Serious: Yes (Other)
  Sender: FDA-Public Use
  Company Number: DE-SA-2019SA107855

PATIENT
  Sex: Male

DRUGS (4)
  1. FEXOFENADIN WINTHROP [Suspect]
     Active Substance: FEXOFENADINE HYDROCHLORIDE
     Dosage: 360 MG, MG
     Route: 065
  2. FEXOFENADIN WINTHROP [Suspect]
     Active Substance: FEXOFENADINE HYDROCHLORIDE
     Indication: URTICARIA
     Dosage: 120 MG, UNK
     Route: 065
  3. FEXOFENADIN WINTHROP [Suspect]
     Active Substance: FEXOFENADINE HYDROCHLORIDE
     Dosage: 540 MG, 3X180 MG
     Route: 065
  4. FEXOFENADIN WINTHROP [Suspect]
     Active Substance: FEXOFENADINE HYDROCHLORIDE
     Dosage: 180 MG, UNK
     Route: 065

REACTIONS (2)
  - Off label use [Unknown]
  - Epilepsy [Unknown]
